FAERS Safety Report 25430668 (Version 1)
Quarter: 2025Q2

REPORT INFORMATION
  Report Type: Spontaneous
  Country: JP (occurrence: JP)
  Receive Date: 20250612
  Receipt Date: 20250612
  Transmission Date: 20250716
  Serious: Yes (Hospitalization, Other)
  Sender: MERCK SHARP & DOHME LLC
  Company Number: JP-009507513-2294833

PATIENT
  Age: 68 Year
  Sex: Male

DRUGS (3)
  1. PEMBROLIZUMAB [Suspect]
     Active Substance: PEMBROLIZUMAB
     Indication: Non-small cell lung cancer
     Route: 065
  2. CARBOPLATIN [Concomitant]
     Active Substance: CARBOPLATIN
     Indication: Non-small cell lung cancer
  3. paclitaxel (nanoparticle albumin-bound) [Concomitant]
     Indication: Non-small cell lung cancer

REACTIONS (3)
  - Immune-mediated cholangitis [Recovering/Resolving]
  - Psoriatic arthropathy [Recovering/Resolving]
  - Meningitis [Recovering/Resolving]
